FAERS Safety Report 15489527 (Version 1)
Quarter: 2018Q4

REPORT INFORMATION
  Report Type: Spontaneous
  Country: US (occurrence: US)
  Receive Date: 20181011
  Receipt Date: 20181011
  Transmission Date: 20190205
  Serious: No
  Sender: FDA-Public Use
  Company Number: US-PERRIGO-18US004759

PATIENT
  Sex: Male
  Weight: 77.98 kg

DRUGS (1)
  1. NICOTINE POLACRILEX [Suspect]
     Active Substance: NICOTINE
     Indication: SMOKING CESSATION THERAPY
     Dosage: 4 MG, UP TO 12 TIMES DAILY
     Route: 002
     Dates: start: 20180419, end: 20180421

REACTIONS (3)
  - Oral mucosal discolouration [Recovered/Resolved]
  - Saliva discolouration [Recovered/Resolved]
  - Tongue discolouration [Recovered/Resolved]

NARRATIVE: CASE EVENT DATE: 20180421
